FAERS Safety Report 7938862-3 (Version None)
Quarter: 2011Q4

REPORT INFORMATION
  Report Type: 
  Country: None (occurrence: None)
  Receive Date: 20111124
  Receipt Date: 20111116
  Transmission Date: 20120403
  Serious: Yes (Hospitalization)
  Sender: FDA-Public Use
  Company Number: FR-BRISTOL-MYERS SQUIBB COMPANY-15764699

PATIENT
  Age: 61 Year
  Sex: Male

DRUGS (11)
  1. ADANCOR [Suspect]
  2. REPAGLINIDE [Suspect]
  3. ATORVASTATIN CALCIUM [Suspect]
  4. ALLOPURINOL [Suspect]
  5. LASIX [Suspect]
     Indication: HYPERTENSION
     Dosage: DOSE DECREASED TO 40MG ON 24MAR2011
     Route: 048
     Dates: start: 20110312, end: 20110331
  6. INSULIN [Suspect]
  7. VITAMIN B1 + B6 [Suspect]
  8. CORGARD [Suspect]
     Indication: HYPERTENSION
     Route: 048
     Dates: start: 20110312
  9. ENALAPRIL MALEATE [Suspect]
     Dosage: 1DF:1UNIT
  10. PLAVIX [Suspect]
  11. MICARDIS HCT [Suspect]
     Dosage: 1DF: 1 UNIT

REACTIONS (7)
  - DYSPNOEA [None]
  - RALES [None]
  - THROMBOCYTOPENIA [None]
  - INJECTION SITE HAEMORRHAGE [None]
  - HAEMATOMA [None]
  - OEDEMA [None]
  - LEUKOPENIA [None]
